FAERS Safety Report 23388852 (Version 2)
Quarter: 2024Q1

REPORT INFORMATION
  Report Type: Report from Study
  Country: CA (occurrence: CA)
  Receive Date: 20240110
  Receipt Date: 20240215
  Transmission Date: 20240410
  Serious: Yes (Death, Hospitalization, Other)
  Sender: FDA-Public Use
  Company Number: CA-ABBVIE-5576588

PATIENT
  Age: 70 Year
  Sex: Male

DRUGS (3)
  1. VENCLEXTA [Suspect]
     Active Substance: VENETOCLAX
     Indication: Acute myeloid leukaemia
     Route: 048
     Dates: start: 20231212
  2. AZACITIDINE [Concomitant]
     Active Substance: AZACITIDINE
     Indication: Product used for unknown indication
  3. HYDROXYUREA [Concomitant]
     Active Substance: HYDROXYUREA
     Indication: Cardiac failure congestive

REACTIONS (12)
  - Infection [Recovering/Resolving]
  - Pyrexia [Recovering/Resolving]
  - Cardiac failure congestive [Fatal]
  - Diarrhoea [Recovering/Resolving]
  - Tachycardia [Recovering/Resolving]
  - Leukocytosis [Fatal]
  - Hypotension [Recovering/Resolving]
  - Swelling [Recovering/Resolving]
  - Upper respiratory tract infection [Recovering/Resolving]
  - Shock [Recovering/Resolving]
  - General physical health deterioration [Fatal]
  - Leukostasis syndrome [Unknown]

NARRATIVE: CASE EVENT DATE: 20231217
